FAERS Safety Report 9196446 (Version 1)
Quarter: 2013Q1

REPORT INFORMATION
  Report Type: Spontaneous
  Country: ES (occurrence: ES)
  Receive Date: 20130328
  Receipt Date: 20130328
  Transmission Date: 20140127
  Serious: Yes (Hospitalization)
  Sender: FDA-Public Use
  Company Number: ES-SANOFI-AVENTIS-2013SA029207

PATIENT
  Age: 89 Year
  Sex: Female

DRUGS (6)
  1. SEGURIL [Suspect]
     Indication: CARDIAC FAILURE
     Route: 048
     Dates: end: 20100604
  2. PRITOR [Interacting]
     Indication: HYPERLIPIDAEMIA
     Route: 048
     Dates: end: 20100527
  3. ALDACTONE [Interacting]
     Indication: CARDIAC FAILURE
     Route: 048
     Dates: end: 20100527
  4. DIGOXIN [Interacting]
     Indication: ATRIAL FLUTTER
     Route: 048
     Dates: end: 20100527
  5. ALDOCUMAR [Concomitant]
     Indication: ATRIAL FLUTTER
     Route: 048
     Dates: start: 201002, end: 20100527
  6. METFORMINA [Concomitant]
     Indication: DIABETES MELLITUS
     Route: 048
     Dates: start: 200708, end: 20100527

REACTIONS (3)
  - Renal failure acute [Recovering/Resolving]
  - Hyperkalaemia [Recovering/Resolving]
  - Drug interaction [Unknown]
